FAERS Safety Report 10392600 (Version 1)
Quarter: 2014Q3

REPORT INFORMATION
  Report Type: Spontaneous
  Country: US (occurrence: US)
  Receive Date: 20140819
  Receipt Date: 20140819
  Transmission Date: 20150326
  Serious: No
  Sender: FDA-Public Use
  Company Number: US-PFIZER INC-2014228754

PATIENT
  Age: 69 Year
  Sex: Female
  Weight: 65.31 kg

DRUGS (17)
  1. LYRICA [Suspect]
     Active Substance: PREGABALIN
     Indication: OXYGEN CONSUMPTION DECREASED
  2. PILOCARPINE [Concomitant]
     Active Substance: PILOCARPINE
     Dosage: 5 MG
  3. NORVASC [Concomitant]
     Active Substance: AMLODIPINE BESYLATE
     Dosage: UNK
  4. FERROUS SULFATE [Concomitant]
     Active Substance: FERROUS SULFATE\FERROUS SULFATE, DRIED
     Indication: ANAEMIA
     Dosage: 325 MG, 3X/DAY
  5. PROZAC [Concomitant]
     Active Substance: FLUOXETINE HYDROCHLORIDE
     Dosage: UNK
  6. DIAZEPAM. [Concomitant]
     Active Substance: DIAZEPAM
     Dosage: 2 MG
  7. LYRICA [Suspect]
     Active Substance: PREGABALIN
     Indication: NEUROPATHY PERIPHERAL
     Dosage: 150 MG, 3X/DAY
     Route: 048
     Dates: start: 2012
  8. PREMARIN [Concomitant]
     Active Substance: ESTROGENS, CONJUGATED
     Dosage: UNK
  9. COUMADIN [Concomitant]
     Active Substance: WARFARIN SODIUM
     Indication: ANTICOAGULANT THERAPY
     Dosage: 6MG 1X/DAY 1ST DAY OF THE WEEK AND 7MG 1X/DAY FOR 2ND DAY OF THE WEEK, 6MG 3X/DAY ON 3RD DAY OF WEEK
  10. NITROGLYCERINE [Concomitant]
     Active Substance: NITROGLYCERIN
     Dosage: UNK
  11. HYDROCODONE [Concomitant]
     Active Substance: HYDROCODONE
     Dosage: 5 MG
  12. BABY ASPIRIN [Concomitant]
     Active Substance: ASPIRIN
     Dosage: 1X/DAY
  13. SIMVASTATIN. [Concomitant]
     Active Substance: SIMVASTATIN
     Indication: BLOOD CHOLESTEROL INCREASED
     Dosage: UNK
  14. CLONIDINE. [Concomitant]
     Active Substance: CLONIDINE
     Dosage: UNK
  15. RESTASIS [Concomitant]
     Active Substance: CYCLOSPORINE
     Dosage: (0.5% EYE EMULSION 2 DROPS), 2X/DAY
     Route: 047
  16. NEXIUM [Concomitant]
     Active Substance: ESOMEPRAZOLE MAGNESIUM
     Dosage: UNK
  17. ALPRAZOLAM. [Concomitant]
     Active Substance: ALPRAZOLAM
     Dosage: UNK

REACTIONS (2)
  - Gait disturbance [Unknown]
  - Drug ineffective [Unknown]

NARRATIVE: CASE EVENT DATE: 2013
